FAERS Safety Report 8964638 (Version 1)
Quarter: 2012Q4

REPORT INFORMATION
  Report Type: 
  Country: US (occurrence: US)
  Receive Date: 20121214
  Receipt Date: 20121214
  Transmission Date: 20130627
  Serious: No
  Sender: FDA-Public Use
  Company Number: US-ASTRAZENECA-2012SE90632

PATIENT
  Age: 48 Year
  Sex: Female
  Weight: 58.1 kg

DRUGS (3)
  1. SYMBICORT PMDI [Suspect]
     Indication: CHRONIC OBSTRUCTIVE PULMONARY DISEASE
     Dosage: 160/4.5, Two puffs Two times a day.
     Route: 055
     Dates: start: 2011, end: 201211
  2. SYMBICORT PMDI [Suspect]
     Indication: CHRONIC OBSTRUCTIVE PULMONARY DISEASE
     Dosage: 160/4.5, Two puffs Three times a day.
     Route: 055
  3. PREDNISONE [Concomitant]
     Indication: DYSPNOEA

REACTIONS (3)
  - Discomfort [Unknown]
  - Intentional drug misuse [Unknown]
  - Drug dose omission [Unknown]
